FAERS Safety Report 10550847 (Version 1)
Quarter: 2014Q4

REPORT INFORMATION
  Report Type: Spontaneous
  Country: US (occurrence: None)
  Receive Date: 20141028
  Receipt Date: 20141028
  Transmission Date: 20150529
  Serious: Yes (Hospitalization)
  Sender: FDA-Public Use
  Company Number: None

PATIENT
  Age: 7 Year
  Sex: Male
  Weight: 24.49 kg

DRUGS (1)
  1. PREVACID [Suspect]
     Active Substance: LANSOPRAZOLE
     Indication: GASTROOESOPHAGEAL REFLUX DISEASE
     Dosage: 3 YEARS ONCE DAILY

REACTIONS (4)
  - Surgical procedure repeated [None]
  - Fracture [None]
  - Compartment syndrome [None]
  - Impaired healing [None]

NARRATIVE: CASE EVENT DATE: 20140424
